FAERS Safety Report 20463020 (Version 4)
Quarter: 2022Q3

REPORT INFORMATION
  Report Type: Report from Study
  Country: CA (occurrence: CA)
  Receive Date: 20220211
  Receipt Date: 20220715
  Transmission Date: 20221027
  Serious: Yes (Other)
  Sender: FDA-Public Use
  Company Number: CA-BoehringerIngelheim-2022-BI-152712

PATIENT
  Age: 13 Year
  Sex: Female
  Weight: 58.7 kg

DRUGS (9)
  1. NINTEDANIB [Suspect]
     Active Substance: NINTEDANIB
     Indication: Interstitial lung disease
     Route: 048
     Dates: start: 20220112, end: 20220204
  2. NINTEDANIB [Suspect]
     Active Substance: NINTEDANIB
     Route: 048
     Dates: start: 20210629, end: 20220111
  3. NINTEDANIB [Suspect]
     Active Substance: NINTEDANIB
     Route: 048
     Dates: start: 20220330, end: 20220412
  4. PREDNISONE [Concomitant]
     Active Substance: PREDNISONE
     Indication: Antiinflammatory therapy
     Route: 048
     Dates: start: 20211215
  5. Mycophenolate mofetil (CELLCEPT) 200 mg/mL suspension [Concomitant]
     Indication: Immunosuppressant drug therapy
     Route: 048
     Dates: start: 20211103
  6. SEPTRA [Concomitant]
     Active Substance: SULFAMETHOXAZOLE\TRIMETHOPRIM
     Indication: Antibiotic therapy
     Route: 048
     Dates: start: 20210222
  7. HYDROXYCHLOROQUINE [Concomitant]
     Active Substance: HYDROXYCHLOROQUINE
     Indication: Antiinflammatory therapy
     Dosage: STRENGTH: 25MG/ML
     Route: 048
     Dates: start: 20210222
  8. BARICITINIB [Concomitant]
     Active Substance: BARICITINIB
     Indication: Antiinflammatory therapy
     Route: 048
     Dates: start: 20210202
  9. VITAMIN D3 [Concomitant]
     Active Substance: CHOLECALCIFEROL
     Indication: Product used for unknown indication
     Route: 048
     Dates: start: 20200909

REACTIONS (1)
  - Liver injury [Recovered/Resolved]

NARRATIVE: CASE EVENT DATE: 20220203
